FAERS Safety Report 6621495-9 (Version None)
Quarter: 2010Q1

REPORT INFORMATION
  Report Type: 
  Country: None (occurrence: None)
  Receive Date: 20100309
  Receipt Date: 20100223
  Transmission Date: 20100710
  Serious: Yes (Hospitalization)
  Sender: FDA-Public Use
  Company Number: TR-TYCO HEALTHCARE/MALLINCKRODT-T201000698

PATIENT
  Age: 51 Year
  Sex: Female

DRUGS (3)
  1. PENNSAID [Suspect]
     Indication: BACK PAIN
     Route: 030
  2. TENOXICAM [Suspect]
     Indication: BACK PAIN
     Route: 030
  3. THIOCOLCHICOSIDE [Suspect]
     Indication: BACK PAIN

REACTIONS (5)
  - ABSCESS BACTERIAL [None]
  - GAIT DISTURBANCE [None]
  - PAIN IN EXTREMITY [None]
  - PARESIS [None]
  - PYREXIA [None]
